FAERS Safety Report 14386858 (Version 1)
Quarter: 2018Q1

REPORT INFORMATION
  Report Type: Spontaneous
  Country: US (occurrence: US)
  Receive Date: 20180115
  Receipt Date: 20180115
  Transmission Date: 20180509
  Serious: Yes (Other)
  Sender: FDA-Public Use
  Company Number: US-SA-2017SA165590

PATIENT
  Sex: Female

DRUGS (6)
  1. CYTOXAN [Concomitant]
     Active Substance: CYCLOPHOSPHAMIDE
  2. DEPOCYT [Concomitant]
     Active Substance: CYTARABINE
  3. TAXOTERE [Suspect]
     Active Substance: DOCETAXEL
     Indication: INVASIVE DUCTAL BREAST CARCINOMA
     Dosage: 70-80MG
     Route: 051
     Dates: start: 20070122, end: 20070122
  4. IDAMYCIN [Concomitant]
     Active Substance: IDARUBICIN HYDROCHLORIDE
  5. ADRIAMYCIN [Concomitant]
     Active Substance: DOXORUBICIN HYDROCHLORIDE
  6. TAXOTERE [Suspect]
     Active Substance: DOCETAXEL
     Indication: INVASIVE DUCTAL BREAST CARCINOMA
     Dosage: 70-80MG
     Route: 051
     Dates: start: 20070409, end: 20070409

REACTIONS (1)
  - Alopecia [Not Recovered/Not Resolved]
